FAERS Safety Report 7656250-4 (Version None)
Quarter: 2011Q3

REPORT INFORMATION
  Report Type: 
  Country: None (occurrence: None)
  Receive Date: 20110729
  Receipt Date: 20110719
  Transmission Date: 20111222
  Serious: Yes (Death, Hospitalization)
  Sender: FDA-Public Use
  Company Number: 2011ST000173

PATIENT
  Age: 23 Year
  Sex: Male

DRUGS (6)
  1. METHOTREXATE [Suspect]
     Indication: ACUTE LYMPHOCYTIC LEUKAEMIA
     Dosage: INTH
     Route: 037
     Dates: start: 20110602, end: 20110610
  2. ONCASPAR [Suspect]
     Indication: ACUTE LYMPHOCYTIC LEUKAEMIA
     Dosage: X1
     Dates: start: 20110531, end: 20110531
  3. VINCRISTINE [Suspect]
     Indication: ACUTE LYMPHOCYTIC LEUKAEMIA
     Dosage: QW; IV
     Route: 042
     Dates: start: 20110526, end: 20110616
  4. CYTARABINE [Suspect]
     Indication: ACUTE LYMPHOCYTIC LEUKAEMIA
     Dosage: X1; INTH
     Route: 037
     Dates: start: 20110525, end: 20110525
  5. DOXORUBICIN HCL [Suspect]
     Indication: ACUTE LYMPHOCYTIC LEUKAEMIA
     Dosage: 43.75 MG/M**2; QW; IV
     Route: 042
     Dates: start: 20110526, end: 20110616
  6. PREDNISONE [Suspect]
     Indication: ACUTE LYMPHOCYTIC LEUKAEMIA
     Dosage: 70 MG; BID; PO
     Route: 048
     Dates: start: 20110525, end: 20110620

REACTIONS (4)
  - PANCREATITIS [None]
  - SEPTIC SHOCK [None]
  - PANCYTOPENIA [None]
  - HYPERBILIRUBINAEMIA [None]
